FAERS Safety Report 26186159 (Version 1)
Quarter: 2025Q4

REPORT INFORMATION
  Report Type: Spontaneous
  Country: BR (occurrence: BR)
  Receive Date: 20251222
  Receipt Date: 20251222
  Transmission Date: 20260118
  Serious: Yes (Death, Hospitalization, Other)
  Sender: PFIZER
  Company Number: BR-PFIZER INC-PV202500146698

PATIENT
  Age: 63 Year
  Sex: Female

DRUGS (5)
  1. RITUXIMAB [Suspect]
     Active Substance: RITUXIMAB
     Dosage: ONE YEAR PRIOR TO VACCINATION
  2. PREDNISONE [Suspect]
     Active Substance: PREDNISONE
     Dosage: MAINTAINED ON LONG-TERM PREDNISONE THERAPY BETWEEN 6-10 MG/DAY FOR APPROXIMATELY TEN YEARS
  3. AZD-1222 [Suspect]
     Active Substance: AZD-1222
     Indication: COVID-19 immunisation
     Dosage: DOSE 1, SINGLE
  4. AZD-1222 [Suspect]
     Active Substance: AZD-1222
     Dosage: DOSE 2, SINGLE
  5. COVID-19 VACCINE NOS [Suspect]
     Active Substance: COVID-19 VACCINE
     Indication: COVID-19 immunisation
     Dosage: DOSE 3 (BOOSTER), SINGLE

REACTIONS (2)
  - COVID-19 [Fatal]
  - Respiratory failure [Fatal]
